FAERS Safety Report 5916858-0 (Version None)
Quarter: 2008Q4

REPORT INFORMATION
  Report Type: 
  Country: None (occurrence: None)
  Receive Date: 20081013
  Receipt Date: 20081006
  Transmission Date: 20090506
  Serious: Yes (Hospitalization)
  Sender: FDA-Public Use
  Company Number: JP-ASTRAZENECA-2008AP06103

PATIENT
  Age: 76 Year
  Sex: Female
  Weight: 29 kg

DRUGS (10)
  1. IRESSA [Suspect]
     Indication: LUNG ADENOCARCINOMA
     Route: 048
     Dates: start: 20060926, end: 20080619
  2. IRESSA [Suspect]
     Route: 048
     Dates: start: 20080620, end: 20080714
  3. IRESSA [Suspect]
     Route: 048
     Dates: start: 20080715, end: 20080722
  4. MARZULENE-S [Concomitant]
     Indication: DYSPEPSIA
     Route: 048
     Dates: start: 20061226, end: 20071015
  5. TAGAMET [Concomitant]
     Indication: DYSPEPSIA
     Route: 048
     Dates: start: 20061226, end: 20071015
  6. MOBIC [Concomitant]
     Indication: CANCER PAIN
     Route: 048
     Dates: start: 20061226, end: 20080803
  7. BONALON 5MG [Concomitant]
     Indication: OSTEOPOROSIS
     Route: 048
     Dates: start: 20070612, end: 20071102
  8. URSO 250 [Concomitant]
     Indication: HEPATIC FUNCTION ABNORMAL
     Route: 048
     Dates: start: 20070807, end: 20080803
  9. PROMAC [Concomitant]
     Indication: GASTRIC ULCER
     Route: 048
     Dates: start: 20080715, end: 20080803
  10. TAKEPRON [Concomitant]
     Indication: GASTRIC ULCER
     Route: 048
     Dates: end: 20080826

REACTIONS (5)
  - DYSGEUSIA [None]
  - HEPATIC FUNCTION ABNORMAL [None]
  - HYPOPHAGIA [None]
  - MALIGNANT NEOPLASM PROGRESSION [None]
  - METASTASES TO MENINGES [None]
